FAERS Safety Report 7450471-1 (Version None)
Quarter: 2011Q2

REPORT INFORMATION
  Report Type: 
  Country: None (occurrence: None)
  Receive Date: 20110429
  Receipt Date: 20110429
  Transmission Date: 20111010
  Serious: Yes (Hospitalization)
  Sender: FDA-Public Use
  Company Number: None

PATIENT
  Age: 44 Year
  Sex: Female
  Weight: 62.5964 kg

DRUGS (1)
  1. PAROXETINE HCL [Suspect]
     Indication: PREMENSTRUAL SYNDROME
     Dosage: 10 MG TABLET 1 TABLET EVERY DAY PO
     Route: 048
     Dates: start: 20110310, end: 20110330

REACTIONS (23)
  - PRESYNCOPE [None]
  - FATIGUE [None]
  - CEREBROVASCULAR ACCIDENT [None]
  - AGITATION [None]
  - CHILLS [None]
  - POISONING [None]
  - MENTAL DISORDER [None]
  - INFLUENZA LIKE ILLNESS [None]
  - ELECTROCARDIOGRAM ABNORMAL [None]
  - FLUSHING [None]
  - PALPITATIONS [None]
  - CONVULSION [None]
  - MUSCLE TIGHTNESS [None]
  - NAUSEA [None]
  - HYPOAESTHESIA [None]
  - PARAESTHESIA [None]
  - BLOOD PRESSURE INCREASED [None]
  - HYPERHIDROSIS [None]
  - INSOMNIA [None]
  - ANXIETY [None]
  - DIZZINESS [None]
  - HEADACHE [None]
  - HYPOAESTHESIA FACIAL [None]
